FAERS Safety Report 10044787 (Version 1)
Quarter: 2014Q1

REPORT INFORMATION
  Report Type: Spontaneous
  Country: FR (occurrence: None)
  Receive Date: 20140326
  Receipt Date: 20140326
  Transmission Date: 20141002
  Serious: Yes (Hospitalization, Other)
  Sender: FDA-Public Use
  Company Number: FR-ALKEM-000537

PATIENT
  Age: 35 Year
  Sex: Male

DRUGS (3)
  1. QUETIAPINE [Suspect]
     Indication: ACUTE PSYCHOSIS
  2. ZUCLOPENTHIXOL [Suspect]
     Indication: MENTAL DISORDER
     Dosage: 100.0000000 - MG. 1.00 DAYS DAYS
  3. LITHIUM (LITHIUM) [Concomitant]

REACTIONS (4)
  - Psychomotor hyperactivity [None]
  - Aggression [None]
  - Paradoxical drug reaction [None]
  - Drug interaction [None]
